FAERS Safety Report 4734796-6 (Version None)
Quarter: 2005Q3

REPORT INFORMATION
  Report Type: 
  Country: None (occurrence: None)
  Receive Date: 20050804
  Receipt Date: 20050801
  Transmission Date: 20060218
  Serious: Yes (Death)
  Sender: FDA-Public Use
  Company Number: 2005UW11335

PATIENT
  Age: 43 Year
  Sex: Female

DRUGS (4)
  1. SEROQUEL [Suspect]
     Dosage: TITRATING UP TO 300 MG HS
     Route: 048
  2. SEROQUEL [Suspect]
     Route: 048
  3. ILLICIT DRUGS [Suspect]
  4. XANAX XR [Concomitant]

REACTIONS (1)
  - OVERDOSE [None]
